FAERS Safety Report 8765639 (Version 2)
Quarter: 2013Q1

REPORT INFORMATION
  Report Type: Spontaneous
  Country: MX (occurrence: MX)
  Receive Date: 20120903
  Receipt Date: 20130125
  Transmission Date: 20140127
  Serious: Yes (Hospitalization, Other)
  Sender: FDA-Public Use
  Company Number: PHHY2012MX075417

PATIENT
  Age: 41 Year
  Sex: Male

DRUGS (4)
  1. TEGRETOL [Suspect]
     Indication: EPILEPSY
     Dosage: 400 MG DAILY
     Route: 048
     Dates: start: 199008
  2. TEGRETOL [Suspect]
     Dosage: 200 MG, UNK
     Route: 048
     Dates: start: 201208
  3. NAPROXEN [Concomitant]
     Dosage: 1 (UNK) DAILY
     Dates: start: 201212
  4. OMEPRAZOL [Concomitant]
     Indication: GASTROINTESTINAL DISORDER
     Dosage: 1 DF DAILY
     Dates: start: 201208

REACTIONS (3)
  - Pancreatitis [Recovered/Resolved]
  - Dyspnoea [Recovered/Resolved]
  - Gastrointestinal disorder [Not Recovered/Not Resolved]
